FAERS Safety Report 5842972-4 (Version None)
Quarter: 2008Q3

REPORT INFORMATION
  Report Type: 
  Country: None (occurrence: None)
  Receive Date: 20080811
  Receipt Date: 20080801
  Transmission Date: 20090109
  Serious: Yes (Disabling)
  Sender: FDA-Public Use
  Company Number: GXKR2008GB07224

PATIENT
  Age: 62 Year
  Sex: Female

DRUGS (7)
  1. AMLODIPINE [Suspect]
     Indication: HYPERTENSION
     Dosage: 1 DF, QD, ORAL
     Route: 048
     Dates: start: 20080417
  2. VALSARTAN [Suspect]
     Indication: HYPERTENSION
     Dosage: 1 DF, QD, ORAL
     Route: 048
     Dates: start: 20080417
  3. ALISKIREN      (ALISKIREN) [Concomitant]
  4. ACETYLSALICYLIC ACID SRT [Concomitant]
  5. LIPITOR /NET/ (ATORVASTATIN CALCIUM) [Concomitant]
  6. SENNA (SENNA, SENNA ALEXANDRINA) [Concomitant]
  7. FEXOFENADINE HCL [Concomitant]

REACTIONS (2)
  - ARTHRALGIA [None]
  - MYALGIA [None]
